FAERS Safety Report 21758310 (Version 2)
Quarter: 2023Q1

REPORT INFORMATION
  Report Type: Spontaneous
  Country: GB (occurrence: GB)
  Receive Date: 20221221
  Receipt Date: 20230110
  Transmission Date: 20230417
  Serious: Yes (Death, Other)
  Sender: FDA-Public Use
  Company Number: None

PATIENT
  Age: 48 Year
  Sex: Male
  Weight: 70 kg

DRUGS (2)
  1. GABAPENTIN [Suspect]
     Active Substance: GABAPENTIN
     Indication: Analgesic therapy
     Dosage: 900 MILLIGRAM, QD (1 DAY) (CAPSULE)
     Route: 065
     Dates: start: 20191014
  2. FLUOXETINE [Concomitant]
     Active Substance: FLUOXETINE HYDROCHLORIDE
     Indication: Bipolar disorder
     Dosage: 40 MILLIGRAM, QD  (1 DAY) (CAPSULE) (TAKING FOR MANY YEARS, 10+)
     Route: 065

REACTIONS (3)
  - Completed suicide [Fatal]
  - Condition aggravated [Fatal]
  - Suicidal ideation [Fatal]
